FAERS Safety Report 24277327 (Version 2)
Quarter: 2024Q3

REPORT INFORMATION
  Report Type: Spontaneous
  Country: US (occurrence: None)
  Receive Date: 20240903
  Receipt Date: 20240918
  Transmission Date: 20241017
  Serious: No
  Sender: ASTRAZENECA
  Company Number: 2024A194846

PATIENT
  Age: 20612 Day
  Sex: Female

DRUGS (1)
  1. SYMBICORT [Suspect]
     Active Substance: BUDESONIDE\FORMOTEROL FUMARATE DIHYDRATE
     Indication: Asthma
     Dosage: 160.0UG AS REQUIRED
     Route: 055

REACTIONS (4)
  - Palpitations [Unknown]
  - Device malfunction [Unknown]
  - Device use issue [Unknown]
  - Confusional state [Unknown]

NARRATIVE: CASE EVENT DATE: 20240825
